FAERS Safety Report 4818545-9 (Version None)
Quarter: 2005Q4

REPORT INFORMATION
  Report Type: 
  Country: None (occurrence: None)
  Receive Date: 20051031
  Receipt Date: 20051018
  Transmission Date: 20060501
  Serious: Yes (Disabling)
  Sender: FDA-Public Use
  Company Number: 2005134361

PATIENT
  Age: 77 Year
  Sex: Male
  Weight: 78.4723 kg

DRUGS (7)
  1. LIPITOR [Suspect]
     Indication: BLOOD CHOLESTEROL INCREASED
     Dosage: 40 MG (1 IN 1 D)
     Dates: start: 20031101, end: 20050901
  2. NORPACE [Concomitant]
  3. ACETYLSALICYLIC ACID SRT [Concomitant]
  4. ALL OTHER NON-THERAPEUTIC PRODUCTS (ALL OTHER NON-THERAPEUTIC PRODUCTS [Concomitant]
  5. MULTIVITAMIN [Concomitant]
  6. COSAMIN DS (ASCORBIC ACID, CHONDROITIN SULFATE SODIUM, GLUCOSAMINE HYD [Concomitant]
  7. CALCIUM (CALCIUM) [Concomitant]

REACTIONS (2)
  - DRUG INEFFECTIVE [None]
  - MYASTHENIA GRAVIS [None]
